FAERS Safety Report 25281580 (Version 1)
Quarter: 2025Q2

REPORT INFORMATION
  Report Type: Spontaneous
  Country: US (occurrence: US)
  Receive Date: 20250508
  Receipt Date: 20250508
  Transmission Date: 20250716
  Serious: Yes (Hospitalization, Other)
  Sender: MACLEODS
  Company Number: US-MACLEODS PHARMA-MAC2024048702

PATIENT

DRUGS (1)
  1. APIXABAN [Suspect]
     Active Substance: APIXABAN
     Indication: Pulmonary embolism
     Route: 065

REACTIONS (5)
  - Blood creatinine increased [Recovering/Resolving]
  - Melaena [Recovering/Resolving]
  - Dermatitis allergic [Recovering/Resolving]
  - Abdominal pain [Recovering/Resolving]
  - Palpable purpura [Recovering/Resolving]
